FAERS Safety Report 9230950 (Version 3)
Quarter: 2013Q3

REPORT INFORMATION
  Report Type: Report from Study
  Country: FR (occurrence: FR)
  Receive Date: 20130415
  Receipt Date: 20130819
  Transmission Date: 20140515
  Serious: Yes (Other)
  Sender: FDA-Public Use
  Company Number: FR-CELGENEUS-056-C5013-13040324

PATIENT
  Age: 77 Year
  Sex: Male
  Weight: 80 kg

DRUGS (16)
  1. REVLIMID [Suspect]
     Indication: PLASMA CELL MYELOMA
     Dosage: 25 MILLIGRAM
     Route: 048
     Dates: start: 20111110, end: 20120830
  2. THALIDOMIDE [Suspect]
     Indication: PLASMA CELL MYELOMA
     Dosage: 200 MILLIGRAM
     Route: 048
     Dates: start: 20100818
  3. THALIDOMIDE [Suspect]
     Dosage: 100 MILLIGRAM
     Route: 048
     Dates: start: 20110818, end: 20110928
  4. MELPHALAN [Suspect]
     Indication: PLASMA CELL MYELOMA
     Dosage: 10 MILLIGRAM
     Route: 065
     Dates: start: 20100818
  5. MELPHALAN [Suspect]
     Dosage: 6 MILLIGRAM
     Route: 065
     Dates: start: 20110819, end: 20110822
  6. MELPHALAN [Suspect]
     Dates: start: 20111104
  7. PREDNISONE [Suspect]
     Indication: PLASMA CELL MYELOMA
     Dosage: 165 MILLIGRAM
     Route: 065
     Dates: start: 20100818
  8. PREDNISONE [Suspect]
     Dosage: 180 MILLIGRAM
     Route: 065
     Dates: start: 20110819, end: 20110822
  9. DEXAMETHASONE [Suspect]
     Indication: PLASMA CELL MYELOMA
     Dosage: 20 MILLIGRAM
     Route: 065
     Dates: start: 20111110, end: 20120830
  10. DEXAMETHASONE [Suspect]
     Route: 065
     Dates: start: 20121017, end: 20121221
  11. ACUPAN [Concomitant]
     Indication: BACK PAIN
     Route: 048
     Dates: start: 201006
  12. PARACETAMOL [Concomitant]
     Indication: BACK PAIN
     Route: 048
     Dates: start: 201005
  13. ZOCOR [Concomitant]
     Indication: HYPERCHOLESTEROLAEMIA
     Dosage: 1 TABLET
     Route: 048
     Dates: start: 2000
  14. INEXIUM [Concomitant]
     Indication: PROPHYLAXIS
     Dosage: 20 MILLIGRAM
     Route: 048
     Dates: start: 201006
  15. KARDEGIC [Concomitant]
     Indication: PROPHYLAXIS
     Dosage: 75 MILLIGRAM
     Route: 048
     Dates: start: 20100817
  16. VITAFACT COLLYRE [Concomitant]
     Indication: LACRIMATION INCREASED
     Dosage: 2 DROPS
     Route: 047
     Dates: start: 20110707

REACTIONS (1)
  - Squamous cell carcinoma of skin [Recovered/Resolved]
